FAERS Safety Report 5443728-7 (Version None)
Quarter: 2007Q3

REPORT INFORMATION
  Report Type: 
  Country: None (occurrence: None)
  Receive Date: 20070730
  Receipt Date: 20070223
  Transmission Date: 20080115
  Serious: Yes (Other)
  Sender: FDA-Public Use
  Company Number: 237209

PATIENT
  Age: 60 Year
  Sex: Female
  Weight: 83.9 kg

DRUGS (2)
  1. RITUXAN [Suspect]
     Indication: RHEUMATOID ARTHRITIS
     Dates: start: 20060908
  2. MEDROL [Suspect]
     Indication: PAIN
     Dates: start: 20060908

REACTIONS (2)
  - SINUSITIS [None]
  - URINARY TRACT INFECTION [None]
